FAERS Safety Report 15597141 (Version 1)
Quarter: 2018Q4

REPORT INFORMATION
  Report Type: Spontaneous
  Country: US (occurrence: US)
  Receive Date: 20181102
  Receipt Date: 20181102
  Transmission Date: 20190205
  Serious: Yes (Hospitalization)
  Sender: FDA-Public Use
  Company Number: None

PATIENT
  Age: 74 Year
  Sex: Male
  Weight: 125.64 kg

DRUGS (1)
  1. GABAPENTIN. [Suspect]
     Active Substance: GABAPENTIN
     Indication: PAIN
     Route: 048
     Dates: start: 20151001, end: 20180723

REACTIONS (9)
  - Muscular weakness [None]
  - Leukocytosis [None]
  - Dysstasia [None]
  - Mental status changes [None]
  - Sedation [None]
  - Urinary tract infection [None]
  - Transient ischaemic attack [None]
  - Anticoagulation drug level below therapeutic [None]
  - Fall [None]

NARRATIVE: CASE EVENT DATE: 20180723
